FAERS Safety Report 8170374-7 (Version None)
Quarter: 2012Q1

REPORT INFORMATION
  Report Type: 
  Country: None (occurrence: None)
  Receive Date: 20120228
  Receipt Date: 20120222
  Transmission Date: 20120608
  Serious: Yes (Other)
  Sender: FDA-Public Use
  Company Number: US-PFIZER INC-2012048349

PATIENT

DRUGS (7)
  1. ACCUPRIL [Suspect]
     Dosage: 20 MG, 2X/DAY  (PO BID)
     Route: 048
  2. CATAPRES [Concomitant]
     Dosage: UNK
  3. CELEBREX [Suspect]
     Dosage: 200 MG, (ONE TABLET PO Q DAY PRN)
     Route: 048
  4. TAPENTADOL [Concomitant]
     Dosage: UNK
  5. DAYPRO [Suspect]
     Dosage: 600 MG, 1X/DAY (PO Q DAY)
     Route: 048
  6. NAMENDA [Concomitant]
     Dosage: UNK
  7. CRESTOR [Concomitant]
     Dosage: UNK

REACTIONS (3)
  - NEPHROLITHIASIS [None]
  - MALAISE [None]
  - INTERVERTEBRAL DISC PROTRUSION [None]
